FAERS Safety Report 5493443-9 (Version None)
Quarter: 2007Q4

REPORT INFORMATION
  Report Type: 
  Country: None (occurrence: None)
  Receive Date: 20071019
  Receipt Date: 20071003
  Transmission Date: 20080405
  Serious: Yes (Life-Threatening, Hospitalization)
  Sender: FDA-Public Use
  Company Number: 162595ISR

PATIENT
  Age: 68 Year
  Sex: Male

DRUGS (31)
  1. CISPLATIN [Suspect]
     Indication: SMALL CELL LUNG CANCER STAGE UNSPECIFIED
     Dosage: 140 MG 980 MG/M-2); INTRAVENOUS
     Route: 042
     Dates: start: 20070508, end: 20070508
  2. CISPLATIN [Suspect]
     Indication: SMALL CELL LUNG CANCER STAGE UNSPECIFIED
     Dosage: 140 MG 980 MG/M-2); INTRAVENOUS
     Route: 042
     Dates: start: 20070531, end: 20070531
  3. IRINOTECAN HCL [Suspect]
     Dosage: SEE IMAGE; INTRAVENOUS ( NOT OTHERWISE SPECIFIED)
     Route: 042
     Dates: start: 20070531, end: 20070531
  4. IRINOTECAN HCL [Suspect]
     Dosage: SEE IMAGE; INTRAVENOUS ( NOT OTHERWISE SPECIFIED)
     Route: 042
     Dates: start: 20070508
  5. FOSICOMP (FOSINOPRIL SODIUM, HYDROCHLOROTHIAZIDE) [Concomitant]
  6. DEXAMETHASONE 0.5MG TAB [Concomitant]
  7. ESOMEPRAZOLE MAGNESIUM [Concomitant]
  8. HALOPERIDOL [Concomitant]
  9. AMIODARONE HYDROCHLORIDE [Concomitant]
  10. SALBUTAMOL [Concomitant]
  11. IPRATROPIUM BROMIDE [Concomitant]
  12. FAMCICLOVIR [Concomitant]
  13. LEVOMEPROMAZINE [Concomitant]
  14. FUROSEMIDE [Concomitant]
  15. DEXAMETHASONE 0.5MG TAB [Concomitant]
  16. BENAZEPRIL HYDROCHLORIDE [Concomitant]
  17. LORAZEPAM [Concomitant]
  18. METOCLOPRAMIDE [Concomitant]
  19. PRIMAXIN [Concomitant]
  20. AMPHOTERICIN B [Concomitant]
  21. PETHIDINE [Concomitant]
  22. PREDNISONE [Concomitant]
  23. STARCH [Concomitant]
  24. NEUPOGEN [Concomitant]
  25. MORPHINE [Concomitant]
  26. NADROPARIN CALCIUM [Concomitant]
  27. POTASSIUM CHLORIDE [Concomitant]
  28. RED BLOOD CELLS [Concomitant]
  29. FLAVOXATE HCL [Concomitant]
  30. CIPROFLOXACIN [Concomitant]
  31. SERETIDE [Concomitant]

REACTIONS (4)
  - GENERAL PHYSICAL HEALTH DETERIORATION [None]
  - OEDEMA PERIPHERAL [None]
  - PNEUMOTHORAX [None]
  - SEPSIS [None]
